FAERS Safety Report 16827375 (Version 2)
Quarter: 2019Q3

REPORT INFORMATION
  Report Type: Report from Study
  Country: None (occurrence: NL)
  Receive Date: 20190919
  Receipt Date: 20190926
  Transmission Date: 20191005
  Serious: Yes (Other)
  Sender: FDA-Public Use
  Company Number: NL-ABBVIE-19S-114-2625943-00

PATIENT
  Sex: Male
  Weight: 59 kg

DRUGS (6)
  1. DUODOPA [Suspect]
     Active Substance: CARBIDOPA\LEVODOPA
     Dosage: MD: 4.1, CD: 1.0, ED: 2.0?16 HOUR ADMINISTRATION
     Route: 050
  2. MADOPAR [Concomitant]
     Active Substance: BENSERAZIDE HYDROCHLORIDE\LEVODOPA
     Indication: PARKINSON^S DISEASE
     Dosage: AT 7 AM
  3. SYMMETREL [Concomitant]
     Active Substance: AMANTADINE HYDROCHLORIDE
     Indication: PARKINSON^S DISEASE
  4. MADOPAR HBS [Concomitant]
     Active Substance: BENSERAZIDE HYDROCHLORIDE\LEVODOPA
     Indication: PARKINSON^S DISEASE
     Dosage: AFTER DISCONNECTING THE PUMP
  5. CLONAZEPAM. [Concomitant]
     Active Substance: CLONAZEPAM
     Indication: SLEEP DISORDER
  6. DUODOPA [Suspect]
     Active Substance: CARBIDOPA\LEVODOPA
     Indication: PARKINSON^S DISEASE
     Route: 050
     Dates: start: 20090707

REACTIONS (15)
  - Gait disturbance [Not Recovered/Not Resolved]
  - Memory impairment [Not Recovered/Not Resolved]
  - Malnutrition [Unknown]
  - Muscular weakness [Not Recovered/Not Resolved]
  - Unevaluable event [Recovered/Resolved]
  - General physical health deterioration [Not Recovered/Not Resolved]
  - Weight decreased [Not Recovered/Not Resolved]
  - Decreased appetite [Not Recovered/Not Resolved]
  - Night sweats [Not Recovered/Not Resolved]
  - Rash [Not Recovered/Not Resolved]
  - On and off phenomenon [Unknown]
  - Motor dysfunction [Recovering/Resolving]
  - Radiotherapy to brain [Unknown]
  - Myalgia [Not Recovered/Not Resolved]
  - Memory impairment [Unknown]

NARRATIVE: CASE EVENT DATE: 2019
